FAERS Safety Report 6010872-5 (Version None)
Quarter: 2008Q4

REPORT INFORMATION
  Report Type: 
  Country: None (occurrence: None)
  Receive Date: 20081218
  Receipt Date: 20081212
  Transmission Date: 20090506
  Serious: Yes (Hospitalization)
  Sender: FDA-Public Use
  Company Number: FR-AVENTIS-200814015FR

PATIENT
  Age: 67 Year
  Sex: Female

DRUGS (3)
  1. ARAVA [Suspect]
     Indication: RHEUMATOID ARTHRITIS
     Route: 048
     Dates: start: 20050101
  2. ELISOR [Concomitant]
     Route: 048
  3. SULFARLEM                          /00558302/ [Concomitant]
     Route: 048

REACTIONS (1)
  - B-CELL LYMPHOMA [None]
